FAERS Safety Report 5883202-7 (Version None)
Quarter: 2008Q3

REPORT INFORMATION
  Report Type: 
  Country: None (occurrence: None)
  Receive Date: 20080915
  Receipt Date: 20080902
  Transmission Date: 20090109
  Serious: Yes (Other)
  Sender: FDA-Public Use
  Company Number: KP-RANBAXY-2008RR-17761

PATIENT

DRUGS (1)
  1. CEFAZOLIN [Suspect]
     Dosage: 500 MG, UNK
     Route: 037

REACTIONS (3)
  - DYSPHAGIA [None]
  - SPEECH DISORDER [None]
  - STATUS EPILEPTICUS [None]
